FAERS Safety Report 9032068 (Version 2)
Quarter: 2013Q1

REPORT INFORMATION
  Report Type: Spontaneous
  Country: US (occurrence: US)
  Receive Date: 20130125
  Receipt Date: 20130130
  Transmission Date: 20140127
  Serious: Yes (Other)
  Sender: FDA-Public Use
  Company Number: US-PFIZER INC-2013032670

PATIENT
  Age: 51 Year
  Sex: Female
  Weight: 127 kg

DRUGS (4)
  1. LYRICA [Suspect]
     Dosage: 225 MG, UNK
     Route: 048
     Dates: start: 2002
  2. LYRICA [Suspect]
     Dosage: 150 MG, 2X/DAY
     Route: 048
  3. LYRICA [Suspect]
     Dosage: UNK
  4. IRON [Concomitant]
     Dosage: UNK

REACTIONS (5)
  - Abasia [Unknown]
  - Oedema peripheral [Unknown]
  - Balance disorder [Unknown]
  - Dizziness [Unknown]
  - Burning sensation [Unknown]
